FAERS Safety Report 9275752 (Version 3)
Quarter: 2013Q3

REPORT INFORMATION
  Report Type: Spontaneous
  Country: US (occurrence: US)
  Receive Date: 20130507
  Receipt Date: 20130701
  Transmission Date: 20140515
  Serious: Yes (Life-Threatening, Hospitalization)
  Sender: FDA-Public Use
  Company Number: US-BAYER-2013-054639

PATIENT
  Age: 54 Year
  Sex: Female
  Weight: 83 kg

DRUGS (6)
  1. ALEVE CAPLET [Suspect]
     Indication: ANALGESIC THERAPY
     Dosage: 2 DF, UNK
     Dates: start: 2012, end: 20130409
  2. ALEVE CAPLET [Suspect]
     Indication: NECK PAIN
  3. LOSARTAN [Concomitant]
     Indication: HYPERTENSION
     Dosage: 1 DF, DAILY
  4. VITAMIN D [Concomitant]
     Dosage: 2000IU, DAILY
  5. ACETAMINOPHEN [Concomitant]
     Dosage: UNK
     Dates: start: 20130408
  6. CALCIUM [Concomitant]
     Dosage: DAILY

REACTIONS (15)
  - Anaphylactic shock [Recovered/Resolved]
  - Expired drug administered [None]
  - Throat irritation [Recovered/Resolved]
  - Ear pruritus [Recovered/Resolved]
  - Pruritus [Recovered/Resolved]
  - Erythema [Recovered/Resolved]
  - Rash [Recovered/Resolved]
  - Urticaria [Recovered/Resolved]
  - Swelling face [Recovered/Resolved]
  - Lip swelling [Recovered/Resolved]
  - Swollen tongue [Recovered/Resolved]
  - Chest discomfort [Recovered/Resolved]
  - Oedema peripheral [Recovered/Resolved]
  - Urticaria [Recovered/Resolved]
  - Fatigue [Recovered/Resolved]
